FAERS Safety Report 7553874-X (Version None)
Quarter: 2011Q2

REPORT INFORMATION
  Report Type: 
  Country: None (occurrence: None)
  Receive Date: 20110617
  Receipt Date: 20110609
  Transmission Date: 20111010
  Serious: Yes (Other)
  Sender: FDA-Public Use
  Company Number: DE-JNJFOC-20110603570

PATIENT
  Sex: Female
  Weight: 67 kg

DRUGS (5)
  1. DOXORUBICIN HYDROCHLORIDE [Suspect]
     Route: 042
     Dates: start: 20110407, end: 20110505
  2. FENISTIL [Concomitant]
     Indication: NAUSEA
     Route: 042
     Dates: start: 20110407, end: 20110505
  3. DEXAMETHASONE SODIUM POSPHATE [Concomitant]
     Indication: NAUSEA
     Route: 042
     Dates: start: 20110407, end: 20110505
  4. DOXORUBICIN HYDROCHLORIDE [Suspect]
     Indication: OVARIAN CANCER
     Route: 042
  5. ONDANSETRON [Concomitant]
     Indication: NAUSEA
     Route: 042
     Dates: start: 20110407, end: 20110505

REACTIONS (2)
  - SKIN REACTION [None]
  - PALMAR-PLANTAR ERYTHRODYSAESTHESIA SYNDROME [None]
